FAERS Safety Report 11029527 (Version 1)
Quarter: 2015Q2

REPORT INFORMATION
  Report Type: Spontaneous
  Country: US (occurrence: None)
  Receive Date: 20150413
  Receipt Date: 20150413
  Transmission Date: 20150821
  Serious: No
  Sender: FDA-Public Use
  Company Number: None

PATIENT
  Age: 33 Year

DRUGS (4)
  1. HUMIRA [Suspect]
     Active Substance: ADALIMUMAB
     Indication: CROHN^S DISEASE
     Dosage: 1 PEN  EVERY TWO WEEKS  INJECTED INTO LEG; FAT TISSUE
     Dates: start: 20140321, end: 20141128
  2. REMICADE [Concomitant]
     Active Substance: INFLIXIMAB
  3. 6-MP [Concomitant]
     Active Substance: MERCAPTOPURINE
  4. MULTIVITAMIN [Concomitant]
     Active Substance: VITAMINS

REACTIONS (1)
  - Palpitations [None]

NARRATIVE: CASE EVENT DATE: 20140328
